FAERS Safety Report 21644002 (Version 1)
Quarter: 2022Q4

REPORT INFORMATION
  Report Type: Report from Study
  Country: PR (occurrence: PR)
  Receive Date: 20221125
  Receipt Date: 20221125
  Transmission Date: 20230112
  Serious: No
  Sender: FDA-Public Use
  Company Number: PR-ABBVIE-4212481

PATIENT
  Sex: Female
  Weight: 101.15 kg

DRUGS (1)
  1. VENCLEXTA [Suspect]
     Active Substance: VENETOCLAX
     Indication: Acute myeloid leukaemia
     Route: 048
     Dates: start: 202208

REACTIONS (3)
  - Depressed mood [Unknown]
  - Alopecia [Unknown]
  - Abdominal pain [Unknown]
